FAERS Safety Report 8506678-5 (Version None)
Quarter: 2012Q3

REPORT INFORMATION
  Report Type: 
  Country: None (occurrence: None)
  Receive Date: 20120712
  Receipt Date: 20120706
  Transmission Date: 20120928
  Serious: Yes (Other)
  Sender: FDA-Public Use
  Company Number: PHHY2012IT059416

PATIENT
  Sex: Male

DRUGS (3)
  1. CIPROFLOXACIN HCL [Suspect]
     Indication: DIVERTICULITIS
     Dosage: 1000 MG, DAILY
     Route: 048
     Dates: start: 20120512, end: 20120525
  2. SELEPARINA [Concomitant]
     Dates: start: 20120512, end: 20120525
  3. METRONIDAZOLE [Concomitant]
     Dates: start: 20120512, end: 20120525

REACTIONS (1)
  - DEEP VEIN THROMBOSIS [None]
